FAERS Safety Report 20041521 (Version 6)
Quarter: 2022Q1

REPORT INFORMATION
  Report Type: Report from Study
  Country: US (occurrence: US)
  Receive Date: 20211108
  Receipt Date: 20220225
  Transmission Date: 20220423
  Serious: No
  Sender: FDA-Public Use
  Company Number: US-NOVARTISTESTPH-NVSC2021US253910

PATIENT
  Sex: Female

DRUGS (3)
  1. KISQALI [Suspect]
     Active Substance: RIBOCICLIB
     Indication: Breast cancer
     Dosage: 600 MG, QD
     Route: 048
     Dates: start: 202110
  2. KISQALI [Suspect]
     Active Substance: RIBOCICLIB
     Dosage: 400 MG, QD
     Route: 048
     Dates: start: 202110
  3. KISQALI [Suspect]
     Active Substance: RIBOCICLIB
     Dosage: 200 MG, QD
     Route: 065

REACTIONS (8)
  - Hypersomnia [Recovering/Resolving]
  - Feeding disorder [Recovering/Resolving]
  - Herpes zoster [Unknown]
  - Vomiting [Unknown]
  - Cough [Unknown]
  - Dyspnoea [Recovering/Resolving]
  - White blood cell count decreased [Unknown]
  - Product dose omission issue [Unknown]
